FAERS Safety Report 7585692-0 (Version None)
Quarter: 2011Q3

REPORT INFORMATION
  Report Type: 
  Country: None (occurrence: None)
  Receive Date: 20110701
  Receipt Date: 20110620
  Transmission Date: 20111222
  Serious: Yes (Hospitalization, Other)
  Sender: FDA-Public Use
  Company Number: US-BAYER-2011-020673

PATIENT
  Age: 32 Year
  Sex: Female
  Weight: 74.83 kg

DRUGS (9)
  1. DROSPIRENONE AND ETHINYL ESTRADIOL [Suspect]
     Indication: ACNE
     Dosage: UNK
     Route: 048
     Dates: start: 20080101, end: 20090101
  2. MULTI-VITAMIN [Concomitant]
     Indication: UNEVALUABLE EVENT
     Dosage: UNK
     Dates: start: 20030101
  3. YAZ [Suspect]
     Indication: ACNE
     Dosage: UNK
     Route: 048
     Dates: start: 20090101, end: 20100101
  4. ADVIL LIQUI-GELS [Concomitant]
  5. FARENHEIT (OTC) [Concomitant]
     Indication: MEDICAL DIET
     Dosage: UNK
     Dates: start: 20070101, end: 20090101
  6. PRILOSEC [Concomitant]
     Indication: GASTROOESOPHAGEAL REFLUX DISEASE
  7. VITAMIN B COMPLEX CAP [Concomitant]
     Indication: UNEVALUABLE EVENT
     Dosage: UNK UNK, QD
     Dates: start: 20030101
  8. YASMIN [Suspect]
     Indication: ACNE
     Dosage: UNK
     Route: 048
     Dates: start: 20030101, end: 20080101
  9. ASCORBIC ACID [Concomitant]
     Indication: UNEVALUABLE EVENT
     Dosage: UNK UNK, QD
     Dates: start: 20030101

REACTIONS (2)
  - INJURY [None]
  - DEEP VEIN THROMBOSIS [None]
